FAERS Safety Report 14195940 (Version 1)
Quarter: 2017Q4

REPORT INFORMATION
  Report Type: Spontaneous
  Country: US (occurrence: US)
  Receive Date: 20171116
  Receipt Date: 20171116
  Transmission Date: 20180321
  Serious: Yes (Other)
  Sender: FDA-Public Use
  Company Number: US-GE HEALTHCARE LIFE SCIENCES-2017CSU003713

PATIENT
  Age: 63 Year
  Sex: Male

DRUGS (3)
  1. OMNIPAQUE [Suspect]
     Active Substance: IOHEXOL
     Dosage: UNK, SINGLE
     Route: 013
     Dates: start: 20171107, end: 20171107
  2. OMNIPAQUE [Suspect]
     Active Substance: IOHEXOL
     Indication: PRODUCT USED FOR UNKNOWN INDICATION
     Dosage: 30 ML, SINGLE
     Route: 013
     Dates: start: 20171107, end: 20171107
  3. OMNIPAQUE [Suspect]
     Active Substance: IOHEXOL
     Dosage: UNK, SINGLE
     Route: 013
     Dates: start: 20171107, end: 20171107

REACTIONS (1)
  - Ventricular fibrillation [Recovered/Resolved]

NARRATIVE: CASE EVENT DATE: 20171107
